FAERS Safety Report 17678426 (Version 1)
Quarter: 2020Q2

REPORT INFORMATION
  Report Type: Spontaneous
  Country: CA (occurrence: CA)
  Receive Date: 20200417
  Receipt Date: 20200417
  Transmission Date: 20200714
  Serious: Yes (Hospitalization)
  Sender: FDA-Public Use
  Company Number: CA-TEVA-2020-CA-1223062

PATIENT
  Age: 61 Year
  Sex: Female
  Weight: 63 kg

DRUGS (3)
  1. ONDANSETRON [Concomitant]
     Active Substance: ONDANSETRON
  2. DEXAMETHASONE. [Concomitant]
     Active Substance: DEXAMETHASONE
  3. OXALIPLATIN. [Suspect]
     Active Substance: OXALIPLATIN
     Indication: COLORECTAL CANCER METASTATIC
     Route: 042

REACTIONS (4)
  - Cough [Recovered/Resolved]
  - Muscle twitching [Recovered/Resolved]
  - Swelling of eyelid [Recovered/Resolved]
  - Dysphonia [Recovered/Resolved]
